FAERS Safety Report 7441888-X (Version None)
Quarter: 2011Q2

REPORT INFORMATION
  Report Type: 
  Country: None (occurrence: None)
  Receive Date: 20110428
  Receipt Date: 20100504
  Transmission Date: 20111010
  Serious: No
  Sender: FDA-Public Use
  Company Number: US-ASTRAZENECA-2010SE20248

PATIENT
  Age: 50 Year
  Sex: Male

DRUGS (1)
  1. ZOMIG [Suspect]
     Route: 048
     Dates: start: 20090101

REACTIONS (1)
  - CLUSTER HEADACHE [None]
